FAERS Safety Report 5648228-7 (Version None)
Quarter: 2008Q1

REPORT INFORMATION
  Report Type: 
  Country: None (occurrence: None)
  Receive Date: 20080304
  Receipt Date: 20080221
  Transmission Date: 20080703
  Serious: Yes (Hospitalization, Other)
  Sender: FDA-Public Use
  Company Number: SE-BRISTOL-MYERS SQUIBB COMPANY-14068522

PATIENT
  Age: 49 Year
  Sex: Female

DRUGS (2)
  1. ENDOXAN [Suspect]
     Indication: LYMPHOMA
     Dates: start: 20070501, end: 20070701
  2. FLUDARABINE [Concomitant]
     Dates: start: 20070501, end: 20070701

REACTIONS (3)
  - NUTRITIONAL CONDITION ABNORMAL [None]
  - PARANEOPLASTIC PEMPHIGUS [None]
  - STOMATITIS [None]
